FAERS Safety Report 24378310 (Version 1)
Quarter: 2024Q3

REPORT INFORMATION
  Report Type: Report from Study
  Country: DE (occurrence: DE)
  Receive Date: 20240930
  Receipt Date: 20240930
  Transmission Date: 20241017
  Serious: Yes (Other)
  Sender: MYLAN
  Company Number: DE-MYLANLABS-2024M1087467

PATIENT
  Sex: Male

DRUGS (1)
  1. GLATIRAMER ACETATE [Suspect]
     Active Substance: GLATIRAMER ACETATE
     Indication: Multiple sclerosis
     Dosage: UNK (40 MILLIGRAM PER MILLILITRE)
     Route: 058
     Dates: start: 20221221, end: 20240910

REACTIONS (3)
  - Multiple sclerosis [Not Recovered/Not Resolved]
  - Paraesthesia [Recovering/Resolving]
  - Drug ineffective [Unknown]

NARRATIVE: CASE EVENT DATE: 20240715
